FAERS Safety Report 25405649 (Version 1)
Quarter: 2025Q2

REPORT INFORMATION
  Report Type: Spontaneous
  Country: FR (occurrence: FR)
  Receive Date: 20250606
  Receipt Date: 20250606
  Transmission Date: 20250716
  Serious: Yes (Hospitalization)
  Sender: TEVA
  Company Number: None

PATIENT
  Age: 80 Year
  Sex: Male
  Weight: 73 kg

DRUGS (4)
  1. ESCITALOPRAM [Interacting]
     Active Substance: ESCITALOPRAM OXALATE
     Indication: Mixed anxiety and depressive disorder
     Route: 048
  2. ALPRAZOLAM [Interacting]
     Active Substance: ALPRAZOLAM
     Indication: Mixed anxiety and depressive disorder
     Dosage: 0.5 MG 2X/DAY
     Route: 048
  3. XTANDI [Interacting]
     Active Substance: ENZALUTAMIDE
     Indication: Hormone-dependent prostate cancer
     Route: 048
     Dates: start: 20250218, end: 20250220
  4. FIRMAGON [Suspect]
     Active Substance: DEGARELIX ACETATE
     Indication: Hormone-dependent prostate cancer
     Route: 058
     Dates: start: 202408, end: 20250219

REACTIONS (2)
  - Suicide attempt [Recovered/Resolved]
  - Drug interaction [Recovered/Resolved]

NARRATIVE: CASE EVENT DATE: 20250218
